FAERS Safety Report 10798036 (Version 5)
Quarter: 2021Q4

REPORT INFORMATION
  Report Type: Spontaneous
  Country: US (occurrence: US)
  Receive Date: 20150216
  Receipt Date: 20211012
  Transmission Date: 20220303
  Serious: No
  Sender: FDA-Public Use
  Company Number: US-PFIZER INC-2015055506

PATIENT
  Age: 56 Year
  Sex: Male
  Weight: 71.66 kg

DRUGS (11)
  1. LYRICA [Suspect]
     Active Substance: PREGABALIN
     Indication: Arthritis
     Dosage: 150 MG, 3X/DAY
     Route: 048
     Dates: start: 20090809
  2. LYRICA [Suspect]
     Active Substance: PREGABALIN
     Indication: Angiopathy
  3. LYRICA [Suspect]
     Active Substance: PREGABALIN
     Indication: Herpes zoster
  4. LYRICA [Suspect]
     Active Substance: PREGABALIN
     Indication: Neuropathy peripheral
  5. LYRICA [Suspect]
     Active Substance: PREGABALIN
     Indication: Post herpetic neuralgia
  6. AZATHIOPRINE [Concomitant]
     Active Substance: AZATHIOPRINE
     Dosage: 50 MG, 2X/DAY
  7. COREG [Concomitant]
     Active Substance: CARVEDILOL
     Dosage: 3 MG, 2X/DAY
  8. PREDNISONE [Concomitant]
     Active Substance: PREDNISONE
     Dosage: 10 MG, MONTHLY
  9. TEMAZEPAM [Concomitant]
     Active Substance: TEMAZEPAM
     Indication: Sleep disorder
     Dosage: 15 MG, 1X/DAY (AT BED TIME)
  10. FOLIC ACID [Concomitant]
     Active Substance: FOLIC ACID
     Dosage: 400 MG, 1X/DAY
  11. HYDROCODONE [Concomitant]
     Active Substance: HYDROCODONE
     Dosage: UNK

REACTIONS (5)
  - Drug ineffective [Unknown]
  - Pain [Unknown]
  - Poor quality sleep [Unknown]
  - Prostatic disorder [Unknown]
  - Feeling abnormal [Unknown]

NARRATIVE: CASE EVENT DATE: 20090809
